FAERS Safety Report 6409190-2 (Version None)
Quarter: 2009Q4

REPORT INFORMATION
  Report Type: 
  Country: None (occurrence: None)
  Receive Date: 20091021
  Receipt Date: 20091009
  Transmission Date: 20100525
  Serious: Yes (Other)
  Sender: FDA-Public Use
  Company Number: PHEH2009US13483

PATIENT
  Sex: Female

DRUGS (1)
  1. EXJADE [Suspect]
     Dosage: 500 MG, BID
     Route: 048
     Dates: start: 20071126

REACTIONS (4)
  - CATARACT [None]
  - CORNEAL OEDEMA [None]
  - STAPHYLOCOCCAL INFECTION [None]
  - VISUAL IMPAIRMENT [None]
